FAERS Safety Report 5915553-1 (Version None)
Quarter: 2008Q4

REPORT INFORMATION
  Report Type: 
  Country: None (occurrence: None)
  Receive Date: 20081010
  Receipt Date: 20080804
  Transmission Date: 20090506
  Serious: No
  Sender: FDA-Public Use
  Company Number: A0740924A

PATIENT
  Age: 62 Year
  Sex: Female

DRUGS (4)
  1. TYKERB [Suspect]
     Indication: BREAST CANCER
     Dosage: 5TAB PER DAY
     Route: 048
     Dates: start: 20080731
  2. HERCEPTIN [Concomitant]
  3. ABRAXANE [Concomitant]
  4. AVASTIN [Concomitant]
     Indication: EYE SWELLING
     Dates: start: 20080707

REACTIONS (2)
  - DIARRHOEA [None]
  - GASTROINTESTINAL PAIN [None]
